APPROVED DRUG PRODUCT: AZITHROMYCIN
Active Ingredient: AZITHROMYCIN
Strength: EQ 500MG BASE/VIAL
Dosage Form/Route: INJECTABLE;INJECTION
Application: A090923 | Product #001
Applicant: SUN PHARMACEUTICAL INDUSTRIES LTD
Approved: Apr 2, 2013 | RLD: No | RS: No | Type: DISCN